FAERS Safety Report 15159715 (Version 4)
Quarter: 2020Q1

REPORT INFORMATION
  Report Type: Spontaneous
  Country: BE (occurrence: BE)
  Receive Date: 20180718
  Receipt Date: 20200225
  Transmission Date: 20200409
  Serious: Yes (Other)
  Sender: FDA-Public Use
  Company Number: BE-JNJFOC-20180716634

PATIENT
  Sex: Female

DRUGS (6)
  1. VEDOLIZUMAB [Suspect]
     Active Substance: VEDOLIZUMAB
     Indication: INFLAMMATORY BOWEL DISEASE
     Dosage: START PERIOD 967 DAYS, LAST PERIOD 92 DAYS.
     Route: 042
     Dates: start: 20150724, end: 20171215
  2. ZYRTEC [Concomitant]
     Active Substance: CETIRIZINE HYDROCHLORIDE
     Route: 065
  3. BECLOMETASON [Concomitant]
     Active Substance: BECLOMETHASONE DIPROPIONATE
     Route: 065
  4. CORSODYL [Suspect]
     Active Substance: CHLORHEXIDINE GLUCONATE
     Indication: PRODUCT USED FOR UNKNOWN INDICATION
     Route: 065
  5. CLIPPER [Suspect]
     Active Substance: BECLOMETHASONE DIPROPIONATE
     Indication: PRODUCT USED FOR UNKNOWN INDICATION
     Route: 065
  6. STELARA [Suspect]
     Active Substance: USTEKINUMAB
     Indication: PRODUCT USED FOR UNKNOWN INDICATION
     Route: 058

REACTIONS (7)
  - Aphthous ulcer [Recovered/Resolved]
  - Pruritus [Recovered/Resolved]
  - Crohn^s disease [Recovered/Resolved]
  - Anal stenosis [Not Recovered/Not Resolved]
  - Colitis [Not Recovered/Not Resolved]
  - Fatigue [Recovered/Resolved]
  - Oropharyngeal pain [Recovered/Resolved]

NARRATIVE: CASE EVENT DATE: 201801
